FAERS Safety Report 23918802 (Version 1)
Quarter: 2024Q2

REPORT INFORMATION
  Report Type: Spontaneous
  Country: US (occurrence: US)
  Receive Date: 20240530
  Receipt Date: 20240530
  Transmission Date: 20240716
  Serious: Yes (Hospitalization)
  Sender: FDA-Public Use
  Company Number: US-STRIDES ARCOLAB LIMITED-2024SP004029

PATIENT
  Age: 6 Decade
  Sex: Male

DRUGS (18)
  1. FLUCYTOSINE [Suspect]
     Active Substance: FLUCYTOSINE
     Indication: Balamuthia infection
     Dosage: 3000 MILLIGRAM, QID
     Route: 065
  2. FLUCYTOSINE [Suspect]
     Active Substance: FLUCYTOSINE
     Indication: Encephalitis protozoal
     Dosage: UNK, (RESTARTED AT REDUCED DOSE)
     Route: 065
  3. ALBENDAZOLE [Suspect]
     Active Substance: ALBENDAZOLE
     Indication: Balamuthia infection
     Dosage: 400 MILLIGRAM, QD
     Route: 048
  4. ALBENDAZOLE [Suspect]
     Active Substance: ALBENDAZOLE
     Indication: Encephalitis protozoal
  5. LEVETIRACETAM [Suspect]
     Active Substance: LEVETIRACETAM
     Indication: Seizure
     Dosage: UNK
     Route: 065
  6. DEXAMETHASONE [Suspect]
     Active Substance: DEXAMETHASONE
     Indication: Seizure
     Dosage: UNK
     Route: 065
  7. SULFADIAZINE [Suspect]
     Active Substance: SULFADIAZINE
     Indication: Balamuthia infection
     Dosage: 1500 MILLIGRAM, QID
     Route: 048
  8. SULFADIAZINE [Suspect]
     Active Substance: SULFADIAZINE
     Indication: Encephalitis protozoal
  9. PENTAMIDINE [Suspect]
     Active Substance: PENTAMIDINE
     Indication: Balamuthia infection
     Dosage: 330 MILLIGRAM, QD
     Route: 042
  10. PENTAMIDINE [Suspect]
     Active Substance: PENTAMIDINE
     Indication: Encephalitis protozoal
  11. FLUCONAZOLE [Suspect]
     Active Substance: FLUCONAZOLE
     Indication: Balamuthia infection
     Dosage: 1000 MILLIGRAM, QD
     Route: 048
  12. FLUCONAZOLE [Suspect]
     Active Substance: FLUCONAZOLE
     Indication: Encephalitis protozoal
  13. AZITHROMYCIN [Suspect]
     Active Substance: AZITHROMYCIN
     Indication: Balamuthia infection
     Dosage: 500 MILLIGRAM, QD
     Route: 048
  14. AZITHROMYCIN [Suspect]
     Active Substance: AZITHROMYCIN
     Indication: Encephalitis protozoal
  15. MILTEFOSINE [Suspect]
     Active Substance: MILTEFOSINE
     Indication: Balamuthia infection
     Dosage: 50 MILLIGRAM, TID
     Route: 048
  16. MILTEFOSINE [Suspect]
     Active Substance: MILTEFOSINE
     Indication: Encephalitis protozoal
  17. NITROXOLINE [Suspect]
     Active Substance: NITROXOLINE
     Indication: Balamuthia infection
     Dosage: UNK
     Route: 065
  18. NITROXOLINE [Suspect]
     Active Substance: NITROXOLINE
     Indication: Encephalitis protozoal
     Dosage: UNK, (RESTARTED)
     Route: 065

REACTIONS (3)
  - Acute kidney injury [Unknown]
  - Neutrophil count decreased [Unknown]
  - Off label use [Unknown]
